FAERS Safety Report 12922528 (Version 1)
Quarter: 2016Q4

REPORT INFORMATION
  Report Type: Spontaneous
  Country: US (occurrence: US)
  Receive Date: 20161109
  Receipt Date: 20161109
  Transmission Date: 20170207
  Serious: No
  Sender: FDA-Public Use
  Company Number: US-AUROBINDO-AUR-APL-2015-09350

PATIENT
  Age: 41 Year
  Sex: Male
  Weight: 112.47 kg

DRUGS (1)
  1. RIBAVIRIN. [Suspect]
     Active Substance: RIBAVIRIN
     Indication: HEPATITIS C VIRUS TEST POSITIVE
     Dosage: 1200 MG, DAILY
     Route: 048
     Dates: start: 20150908, end: 20150909

REACTIONS (4)
  - Nausea [Recovered/Resolved]
  - Muscle spasms [Recovered/Resolved]
  - Food poisoning [Unknown]
  - Chills [Recovered/Resolved]

NARRATIVE: CASE EVENT DATE: 20150909
